FAERS Safety Report 4843172-7 (Version None)
Quarter: 2005Q4

REPORT INFORMATION
  Report Type: 
  Country: None (occurrence: None)
  Receive Date: 20051027
  Receipt Date: 20050628
  Transmission Date: 20060501
  Serious: Yes (Other)
  Sender: FDA-Public Use
  Company Number: HQWYE951301JUL05

PATIENT
  Age: 55 Year
  Sex: Female
  Weight: 61.29 kg

DRUGS (6)
  1. PREMARIN [Suspect]
     Indication: HOT FLUSH
     Dosage: 0.9 MG 1X PER 1 DAY
     Dates: start: 19900101, end: 20050628
  2. LIPITOR [Concomitant]
  3. CLARINEX [Concomitant]
  4. SOMA [Concomitant]
  5. PREVACID [Concomitant]
  6. NITROGLYCERIN TRANSDERMAL SYSTEM (GLYCERYL TRINITRATE) [Concomitant]

REACTIONS (1)
  - CEREBROVASCULAR ACCIDENT [None]
